FAERS Safety Report 7298238-1 (Version None)
Quarter: 2011Q1

REPORT INFORMATION
  Report Type: 
  Country: None (occurrence: None)
  Receive Date: 20110214
  Receipt Date: 20110214
  Transmission Date: 20110831
  Serious: Yes (Disabling)
  Sender: FDA-Public Use
  Company Number: None

PATIENT
  Sex: Female
  Weight: 59.7 kg

DRUGS (1)
  1. TREANDA [Suspect]
     Dosage: 137MG D1 + D2 IV
     Route: 042
     Dates: start: 20110210, end: 20110210

REACTIONS (1)
  - FEELING HOT [None]
